FAERS Safety Report 12495585 (Version 1)
Quarter: 2016Q2

REPORT INFORMATION
  Report Type: Other
  Country: DE (occurrence: DE)
  Receive Date: 20160624
  Receipt Date: 20160624
  Transmission Date: 20160815
  Serious: Yes (Other)
  Sender: FDA-Public Use
  Company Number: DE-CIPLA LTD.-2016DE08112

PATIENT

DRUGS (2)
  1. QUETIAPINE. [Interacting]
     Active Substance: QUETIAPINE
     Indication: INTENTIONAL OVERDOSE
     Dosage: 12 G /?, UNK
     Route: 048
  2. RISPERIDONE. [Suspect]
     Active Substance: RISPERIDONE
     Indication: INTENTIONAL OVERDOSE
     Dosage: 0.4 G /?, UNK
     Route: 065

REACTIONS (9)
  - Overdose [Unknown]
  - Heart rate increased [Unknown]
  - Intentional overdose [Unknown]
  - Pneumonia [Unknown]
  - Suicide attempt [Unknown]
  - Coma [Unknown]
  - Drug level increased [Unknown]
  - Somnolence [Unknown]
  - Drug interaction [Unknown]
